FAERS Safety Report 5253959-7 (Version None)
Quarter: 2007Q1

REPORT INFORMATION
  Report Type: 
  Country: None (occurrence: None)
  Receive Date: 20070228
  Receipt Date: 20070228
  Transmission Date: 20070707
  Serious: Yes (Other)
  Sender: FDA-Public Use
  Company Number: None

PATIENT
  Sex: Female
  Weight: 22.6799 kg

DRUGS (1)
  1. REGLAN [Suspect]
     Indication: VOMITING
     Dosage: 4 MLS 4 TIMES A DAY
     Dates: start: 20060929, end: 20061225

REACTIONS (6)
  - BLOOD PRESSURE INCREASED [None]
  - HALLUCINATION [None]
  - HEART RATE INCREASED [None]
  - INSOMNIA [None]
  - SPEECH DISORDER [None]
  - TREMOR [None]
